FAERS Safety Report 5647075-X (Version None)
Quarter: 2008Q1

REPORT INFORMATION
  Report Type: 
  Country: None (occurrence: None)
  Receive Date: 20080303
  Receipt Date: 20080221
  Transmission Date: 20080703
  Serious: Yes (Other)
  Sender: FDA-Public Use
  Company Number: US-JNJFOC-20080201410

PATIENT
  Sex: Female
  Weight: 63.5 kg

DRUGS (6)
  1. DURAGESIC-100 [Suspect]
     Dosage: TWO 100UG/HR PATCHES
     Route: 062
  2. DURAGESIC-100 [Suspect]
     Route: 062
  3. DURAGESIC-100 [Suspect]
     Indication: PAIN
     Route: 062
  4. SOMA [Concomitant]
     Indication: HYPOTONIA
     Route: 048
  5. VALIUM [Concomitant]
     Indication: DRUG USE FOR UNKNOWN INDICATION
     Route: 048
  6. KETOPROFEN [Concomitant]
     Indication: ANTIINFLAMMATORY THERAPY
     Route: 048

REACTIONS (11)
  - APPLICATION SITE ERYTHEMA [None]
  - APPLICATION SITE RASH [None]
  - BACK PAIN [None]
  - DERMATITIS CONTACT [None]
  - DRUG EFFECT INCREASED [None]
  - EATING DISORDER [None]
  - FEELING ABNORMAL [None]
  - LUMBAR PUNCTURE [None]
  - NEURALGIA [None]
  - PAIN [None]
  - WRONG TECHNIQUE IN DRUG USAGE PROCESS [None]
